FAERS Safety Report 25034740 (Version 1)
Quarter: 2025Q1

REPORT INFORMATION
  Report Type: Spontaneous
  Country: US (occurrence: US)
  Receive Date: 20250304
  Receipt Date: 20250304
  Transmission Date: 20250408
  Serious: No
  Sender: APOTEX
  Company Number: US-APOTEX-2025AP002686

PATIENT
  Age: 78 Year
  Sex: Male

DRUGS (14)
  1. GEMCITABINE [Suspect]
     Active Substance: GEMCITABINE
     Indication: Pancreatic carcinoma stage IV
     Route: 065
     Dates: start: 201903, end: 201906
  2. GEMCITABINE [Suspect]
     Active Substance: GEMCITABINE
     Route: 065
     Dates: start: 201909, end: 201912
  3. GEMCITABINE [Suspect]
     Active Substance: GEMCITABINE
     Route: 042
     Dates: start: 202001, end: 202009
  4. ABRAXANE [Suspect]
     Active Substance: PACLITAXEL
     Indication: Pancreatic carcinoma stage IV
     Route: 065
     Dates: start: 201903, end: 201906
  5. ABRAXANE [Suspect]
     Active Substance: PACLITAXEL
     Route: 065
     Dates: start: 201909, end: 201912
  6. CISPLATIN [Concomitant]
     Active Substance: CISPLATIN
     Indication: Pancreatic carcinoma stage IV
     Route: 065
     Dates: start: 202001, end: 202005
  7. N 803 [Concomitant]
     Indication: Pancreatic carcinoma stage IV
     Route: 058
     Dates: start: 202006, end: 202009
  8. PD-L1 T-HANK [Concomitant]
     Indication: Pancreatic carcinoma stage IV
     Route: 042
     Dates: start: 202006, end: 202009
  9. ALDOXORUBICIN [Concomitant]
     Active Substance: ALDOXORUBICIN
     Indication: Pancreatic carcinoma stage IV
     Route: 042
     Dates: start: 202006, end: 202009
  10. METHOXSALEN [Concomitant]
     Active Substance: METHOXSALEN
     Indication: Pancreatic carcinoma stage IV
     Route: 065
     Dates: start: 201912
  11. DILANTIN [Concomitant]
     Active Substance: PHENYTOIN
     Indication: Pancreatic carcinoma stage IV
     Route: 065
     Dates: start: 201912
  12. RAPAMUNE [Concomitant]
     Active Substance: SIROLIMUS
     Indication: Pancreatic carcinoma stage IV
     Route: 065
     Dates: start: 201912
  13. SIROLIMUS [Concomitant]
     Active Substance: SIROLIMUS
     Indication: Pancreatic carcinoma stage IV
     Route: 065
     Dates: start: 201912
  14. PEMBROLIZUMAB [Concomitant]
     Active Substance: PEMBROLIZUMAB
     Indication: Pancreatic carcinoma stage IV
     Route: 065
     Dates: start: 201907, end: 201909

REACTIONS (1)
  - Toxicity to various agents [Unknown]

NARRATIVE: CASE EVENT DATE: 20190101
